FAERS Safety Report 4416852-5 (Version None)
Quarter: 2004Q3

REPORT INFORMATION
  Report Type: 
  Country: None (occurrence: None)
  Receive Date: 20040802
  Receipt Date: 20040721
  Transmission Date: 20050211
  Serious: Yes (Hospitalization)
  Sender: FDA-Public Use
  Company Number: US-JNJFOC-20040608318

PATIENT
  Age: 89 Year
  Sex: Male
  Weight: 48.5349 kg

DRUGS (15)
  1. REMINYL [Suspect]
     Indication: DEMENTIA ALZHEIMER'S TYPE
     Dosage: SEE IMAGE
     Route: 048
     Dates: start: 20040622, end: 20040625
  2. REMINYL [Suspect]
     Indication: DEMENTIA ALZHEIMER'S TYPE
     Dosage: SEE IMAGE
     Route: 048
     Dates: start: 20040712
  3. REMINYL [Concomitant]
  4. PLAVIX [Concomitant]
  5. FLOMAX [Concomitant]
  6. BETAPACE [Concomitant]
  7. TRUSOPT [Concomitant]
  8. ZOLOFT [Concomitant]
  9. XALATAN [Concomitant]
  10. IMDUR [Concomitant]
  11. TYLENOL [Concomitant]
  12. LASIX [Concomitant]
  13. POTASSIUM CHLORIDE [Concomitant]
  14. LISINOPRIL [Concomitant]
  15. PRAVACHOL [Concomitant]

REACTIONS (8)
  - CLOSTRIDIUM COLITIS [None]
  - CULTURE URINE POSITIVE [None]
  - DEHYDRATION [None]
  - GLYCOPEPTIDE ANTIBIOTIC RESISTANT ENTEROCOCCAL INFECTION [None]
  - HYPOTENSION [None]
  - NAUSEA [None]
  - VOMITING [None]
  - WEIGHT DECREASED [None]
